FAERS Safety Report 25775017 (Version 1)
Quarter: 2025Q3

REPORT INFORMATION
  Report Type: Spontaneous
  Country: US (occurrence: US)
  Receive Date: 20250909
  Receipt Date: 20250909
  Transmission Date: 20251021
  Serious: No
  Sender: MERCK SHARP & DOHME LLC
  Company Number: US-009507513-2320503

PATIENT
  Age: 6 Year

DRUGS (5)
  1. TEMOZOLOMIDE [Suspect]
     Active Substance: TEMOZOLOMIDE
     Indication: Embryonal rhabdomyosarcoma
     Route: 048
  2. VINCRISTINE [Concomitant]
     Active Substance: VINCRISTINE
     Indication: Embryonal rhabdomyosarcoma
  3. SIROLIMUS [Concomitant]
     Active Substance: SIROLIMUS
     Indication: Embryonal rhabdomyosarcoma
  4. IRINOTECAN [Concomitant]
     Active Substance: IRINOTECAN
     Indication: Embryonal rhabdomyosarcoma
  5. DOXORUBICIN [Concomitant]
     Active Substance: DOXORUBICIN
     Indication: Embryonal rhabdomyosarcoma

REACTIONS (1)
  - Off label use [Unknown]
